FAERS Safety Report 4284118-2 (Version None)
Quarter: 2004Q1

REPORT INFORMATION
  Report Type: 
  Country: None (occurrence: None)
  Receive Date: 20040130
  Receipt Date: 20040119
  Transmission Date: 20041129
  Serious: Yes (Hospitalization, Disabling, Other)
  Sender: FDA-Public Use
  Company Number: FI-SHR-04-019967

PATIENT
  Age: 68 Year
  Sex: Male

DRUGS (4)
  1. FLUDARA [Suspect]
     Indication: SPLENOMEGALY
     Dosage: 50 MG, INTRAVENOUS
     Route: 042
     Dates: start: 20031112, end: 20031114
  2. CYCLOPHOSPHAMIDE [Concomitant]
  3. TAVANIC (LEVOFLOXACIN) [Concomitant]
  4. CITHROMAX [Concomitant]

REACTIONS (9)
  - CEREBRAL ATROPHY [None]
  - CSF LYMPHOCYTE COUNT ABNORMAL [None]
  - DISORIENTATION [None]
  - ELECTROENCEPHALOGRAM ABNORMAL [None]
  - ENCEPHALITIS [None]
  - LOSS OF CONSCIOUSNESS [None]
  - MEMORY IMPAIRMENT [None]
  - STATUS EPILEPTICUS [None]
  - TREMOR [None]
